FAERS Safety Report 25402743 (Version 1)
Quarter: 2025Q2

REPORT INFORMATION
  Report Type: Spontaneous
  Country: CN (occurrence: CN)
  Receive Date: 20250605
  Receipt Date: 20250605
  Transmission Date: 20250717
  Serious: Yes (Other)
  Sender: ELI LILLY AND COMPANY
  Company Number: CN-ELI_LILLY_AND_COMPANY-CN202506003518

PATIENT
  Age: 45 Year
  Sex: Female

DRUGS (2)
  1. GEMCITABINE HYDROCHLORIDE [Suspect]
     Active Substance: GEMCITABINE HYDROCHLORIDE
     Indication: Ductal adenocarcinoma of pancreas
     Route: 065
  2. PACLITAXEL [Suspect]
     Active Substance: PACLITAXEL
     Indication: Ductal adenocarcinoma of pancreas

REACTIONS (3)
  - Alpha 1 foetoprotein increased [Recovering/Resolving]
  - Malignant neoplasm progression [Unknown]
  - Drug intolerance [Unknown]
